FAERS Safety Report 6114713-7 (Version None)
Quarter: 2009Q1

REPORT INFORMATION
  Report Type: 
  Country: None (occurrence: None)
  Receive Date: 20090313
  Receipt Date: 20090304
  Transmission Date: 20090719
  Serious: Yes (Disabling)
  Sender: FDA-Public Use
  Company Number: PHHY2009FR08781

PATIENT
  Age: 83 Year
  Sex: Female

DRUGS (1)
  1. ZOMETA [Suspect]
     Indication: MULTIPLE MYELOMA
     Dosage: 4 MG, QMO
     Route: 042
     Dates: start: 20060601, end: 20070701

REACTIONS (4)
  - BONE DEBRIDEMENT [None]
  - MUCOSAL ULCERATION [None]
  - OSTEONECROSIS [None]
  - TOOTH EXTRACTION [None]
